FAERS Safety Report 4883007-X (Version None)
Quarter: 2006Q1

REPORT INFORMATION
  Report Type: 
  Country: None (occurrence: None)
  Receive Date: 20060118
  Receipt Date: 20060109
  Transmission Date: 20060701
  Serious: Yes (Other)
  Sender: FDA-Public Use
  Company Number: PHEH2006US00731

PATIENT
  Age: 46 Year
  Sex: Male

DRUGS (3)
  1. TEGRETOL-XR [Suspect]
     Indication: EPILEPSY
     Dosage: 400 MG, BID
     Route: 048
     Dates: start: 19910101
  2. TYLENOL (CAPLET) [Concomitant]
     Dosage: UNK, PRN
  3. SUDAFED 12 HOUR [Concomitant]
     Indication: SEASONAL ALLERGY
     Dosage: UNK, PRN

REACTIONS (7)
  - ALANINE AMINOTRANSFERASE INCREASED [None]
  - ASPARTATE AMINOTRANSFERASE INCREASED [None]
  - CONVULSION [None]
  - DRUG INEFFECTIVE [None]
  - HEPATIC STEATOSIS [None]
  - HEPATITIS C [None]
  - PANCREATITIS [None]
